FAERS Safety Report 17585982 (Version 1)
Quarter: 2020Q1

REPORT INFORMATION
  Report Type: Report from Study
  Country: US (occurrence: US)
  Receive Date: 20200326
  Receipt Date: 20200326
  Transmission Date: 20200409
  Serious: Yes (Hospitalization, Other)
  Sender: FDA-Public Use
  Company Number: US-BRISTOL-MYERS SQUIBB COMPANY-BMS-2020-022620

PATIENT
  Age: 78 Year
  Sex: Male
  Weight: 88 kg

DRUGS (32)
  1. ELOTUZUMAB. [Suspect]
     Active Substance: ELOTUZUMAB
     Indication: PRODUCT USED FOR UNKNOWN INDICATION
     Dosage: 10 MG/KG Q28 DAYS
     Route: 042
     Dates: start: 20190108
  2. POMALIDOMIDE [Suspect]
     Active Substance: POMALIDOMIDE
     Indication: PRODUCT USED FOR UNKNOWN INDICATION
     Dosage: 4 MG Q21 DAYS 14 DAYS OFF
     Route: 048
     Dates: start: 20160705, end: 20160810
  3. DECADRON [Suspect]
     Active Substance: DEXAMETHASONE
     Indication: PLASMA CELL MYELOMA
     Dosage: 20 MG DAY BEFORE AND DAY AFTER VELCADE
     Route: 048
     Dates: start: 20101213, end: 20110109
  4. DECADRON [Suspect]
     Active Substance: DEXAMETHASONE
     Indication: PRODUCT USED FOR UNKNOWN INDICATION
     Dosage: 20 MILLIGRAM, QWK
     Route: 048
     Dates: start: 20150310, end: 20150824
  5. DECADRON [Suspect]
     Active Substance: DEXAMETHASONE
     Indication: PRODUCT USED FOR UNKNOWN INDICATION
     Dosage: 20 MILLIGRAM, QWK
     Route: 048
     Dates: start: 20180709, end: 20180809
  6. ELOTUZUMAB. [Suspect]
     Active Substance: ELOTUZUMAB
     Indication: PLASMA CELL MYELOMA
     Dosage: 10 MILLIGRAM/KILOGRAM, QWK
     Route: 042
     Dates: start: 20180823, end: 20181016
  7. DECADRON [Suspect]
     Active Substance: DEXAMETHASONE
     Indication: PRODUCT USED FOR UNKNOWN INDICATION
     Dosage: 20 MG DAY BEFORE VELCADE
     Route: 048
     Dates: start: 20110110, end: 20110413
  8. DECADRON [Suspect]
     Active Substance: DEXAMETHASONE
     Indication: PRODUCT USED FOR UNKNOWN INDICATION
     Dosage: 20 MG DAY 1A4,1 720 Q 28 DAYS
     Route: 048
     Dates: start: 20181023, end: 20181129
  9. POMALIDOMIDE [Suspect]
     Active Substance: POMALIDOMIDE
     Indication: PRODUCT USED FOR UNKNOWN INDICATION
     Dosage: 4 MG D1-21 Q2SD
     Route: 048
     Dates: start: 20160204, end: 20160704
  10. POMALIDOMIDE [Suspect]
     Active Substance: POMALIDOMIDE
     Indication: PRODUCT USED FOR UNKNOWN INDICATION
     Dosage: 4 MG Q14 DAYS 14 DAYS OFF
     Route: 048
     Dates: start: 20160811, end: 20160930
  11. POMALIDOMIDE [Suspect]
     Active Substance: POMALIDOMIDE
     Indication: PRODUCT USED FOR UNKNOWN INDICATION
     Dosage: 2 MILLIGRAM, QOD
     Route: 048
     Dates: start: 20190125
  12. POMALIDOMIDE [Suspect]
     Active Substance: POMALIDOMIDE
     Indication: PRODUCT USED FOR UNKNOWN INDICATION
     Dosage: 2 MG QM,W,F
     Route: 048
     Dates: start: 20190819
  13. DECADRON [Suspect]
     Active Substance: DEXAMETHASONE
     Indication: PRODUCT USED FOR UNKNOWN INDICATION
     Dosage: 4 MG 4D ON AND 4 D OFF
     Route: 048
     Dates: start: 20140826, end: 20140923
  14. DECADRON [Suspect]
     Active Substance: DEXAMETHASONE
     Indication: PRODUCT USED FOR UNKNOWN INDICATION
     Dosage: 20 MILLIGRAM, QWK
     Route: 048
     Dates: start: 20190314
  15. ELOTUZUMAB. [Suspect]
     Active Substance: ELOTUZUMAB
     Indication: PRODUCT USED FOR UNKNOWN INDICATION
     Dosage: 10 MILLIGRAM/KILOGRAM, Q28 DAYS
     Route: 042
     Dates: start: 20190805
  16. POMALIDOMIDE [Suspect]
     Active Substance: POMALIDOMIDE
     Indication: PLASMA CELL MYELOMA
     Dosage: 2 MG D 1-21 Q28D
     Route: 048
     Dates: start: 20140728, end: 20140729
  17. POMALIDOMIDE [Suspect]
     Active Substance: POMALIDOMIDE
     Indication: PRODUCT USED FOR UNKNOWN INDICATION
     Dosage: 2 MG QD X 21 DAYS OFF 7 DAYS
     Route: 048
     Dates: start: 20190125, end: 20190205
  18. POMALIDOMIDE [Suspect]
     Active Substance: POMALIDOMIDE
     Indication: PRODUCT USED FOR UNKNOWN INDICATION
     Dosage: 2 MG QM,W,F,S
     Route: 048
     Dates: start: 20190412, end: 20190425
  19. POMALIDOMIDE [Suspect]
     Active Substance: POMALIDOMIDE
     Indication: PRODUCT USED FOR UNKNOWN INDICATION
     Dosage: 2 MG QM,W,F
     Route: 048
     Dates: start: 20190429, end: 20190502
  20. DECADRON [Suspect]
     Active Substance: DEXAMETHASONE
     Indication: PLASMA CELL MYELOMA
     Dosage: 8 MG DAY OF CHEMO
     Route: 042
     Dates: start: 20120814, end: 20130114
  21. DECADRON [Suspect]
     Active Substance: DEXAMETHASONE
     Indication: PRODUCT USED FOR UNKNOWN INDICATION
     Dosage: 20 MG WITH KYPROLIS
     Route: 042
     Dates: start: 20180409, end: 20180628
  22. ELOTUZUMAB. [Suspect]
     Active Substance: ELOTUZUMAB
     Indication: PRODUCT USED FOR UNKNOWN INDICATION
     Dosage: 10 MILLIGRAM/KILOGRAM, Q28 DAYS
     Route: 042
     Dates: start: 20190108, end: 20190205
  23. ELOTUZUMAB. [Suspect]
     Active Substance: ELOTUZUMAB
     Indication: PRODUCT USED FOR UNKNOWN INDICATION
     Dosage: 10 MILLIGRAM/KILOGRAM, Q28 DAYS
     Route: 042
     Dates: start: 20190214, end: 20190722
  24. DECADRON [Suspect]
     Active Substance: DEXAMETHASONE
     Indication: PRODUCT USED FOR UNKNOWN INDICATION
     Dosage: 8 MG DAY BEFORE CHERNO
     Route: 048
     Dates: start: 20120816, end: 20130114
  25. DECADRON [Suspect]
     Active Substance: DEXAMETHASONE
     Indication: PRODUCT USED FOR UNKNOWN INDICATION
     Dosage: 20 MILLIGRAM, QWK
     Route: 048
     Dates: start: 20190108
  26. DECADRON [Suspect]
     Active Substance: DEXAMETHASONE
     Indication: PRODUCT USED FOR UNKNOWN INDICATION
     Dosage: 4 MG D 1-2,8-9,15-16 Q28D
     Route: 042
     Dates: start: 20140113, end: 20140514
  27. DECADRON [Suspect]
     Active Substance: DEXAMETHASONE
     Indication: PRODUCT USED FOR UNKNOWN INDICATION
     Dosage: 20 MG PROIR TO ELOTUZUMAB
     Route: 042
     Dates: start: 20180823, end: 20181016
  28. PROCRIT [Concomitant]
     Active Substance: ERYTHROPOIETIN
     Indication: PRODUCT USED FOR UNKNOWN INDICATION
     Dosage: 40000 UNIT, QWK
     Route: 065
     Dates: start: 20190718
  29. DECADRON [Suspect]
     Active Substance: DEXAMETHASONE
     Indication: PRODUCT USED FOR UNKNOWN INDICATION
     Dosage: 16 MG DAY OF AND DAY AFTER VELCADE
     Route: 048
     Dates: start: 20130128, end: 20140113
  30. DECADRON [Suspect]
     Active Substance: DEXAMETHASONE
     Indication: PRODUCT USED FOR UNKNOWN INDICATION
     Dosage: 20 MG WITH NINLARO
     Route: 048
     Dates: start: 20161003, end: 20180404
  31. POMALIDOMIDE [Suspect]
     Active Substance: POMALIDOMIDE
     Indication: PRODUCT USED FOR UNKNOWN INDICATION
     Dosage: 2 MG QM,W,F
     Route: 048
     Dates: start: 20190228, end: 20190411
  32. DECADRON [Suspect]
     Active Substance: DEXAMETHASONE
     Indication: PRODUCT USED FOR UNKNOWN INDICATION
     Dosage: 20 MG PROIR TO ELOTUZUMAB
     Route: 042
     Dates: start: 20190108

REACTIONS (2)
  - Asthenia [Unknown]
  - Pyrexia [Not Recovered/Not Resolved]

NARRATIVE: CASE EVENT DATE: 20200304
